FAERS Safety Report 15113655 (Version 3)
Quarter: 2019Q1

REPORT INFORMATION
  Report Type: Report from Study
  Country: US (occurrence: US)
  Receive Date: 20180706
  Receipt Date: 20190328
  Transmission Date: 20190417
  Serious: Yes (Other)
  Sender: FDA-Public Use
  Company Number: US-ROCHE-2148835

PATIENT
  Age: 37 Year
  Sex: Female
  Weight: 90.35 kg

DRUGS (5)
  1. OCREVUS [Suspect]
     Active Substance: OCRELIZUMAB
     Dosage: FIRST FULL DOSE
     Route: 042
     Dates: start: 20180611
  2. OCREVUS [Suspect]
     Active Substance: OCRELIZUMAB
     Indication: RELAPSING-REMITTING MULTIPLE SCLEROSIS
     Dosage: FIRST TWO HALF DOSES
     Route: 042
     Dates: start: 20170902
  3. IBUPROFEN. [Concomitant]
     Active Substance: IBUPROFEN
  4. MACROBID (UNITED STATES) [Concomitant]
     Indication: INFECTION PROPHYLAXIS
     Dosage: ONGOING:YES;STARTED 4-5 MONTHS AGO
     Route: 065
  5. NALTREXONE [Concomitant]
     Active Substance: NALTREXONE
     Dosage: ONGOING:YES;LOW DOSE
     Route: 065

REACTIONS (16)
  - Tachycardia [Recovered/Resolved]
  - Bone pain [Recovered/Resolved]
  - Dyspepsia [Unknown]
  - Urinary tract infection [Not Recovered/Not Resolved]
  - Hypoaesthesia [Unknown]
  - Hypoaesthesia oral [Unknown]
  - Trichorrhexis [Unknown]
  - Hair injury [Not Recovered/Not Resolved]
  - Scab [Not Recovered/Not Resolved]
  - Dandruff [Unknown]
  - Psoriasis [Not Recovered/Not Resolved]
  - Alopecia [Not Recovered/Not Resolved]
  - Heart rate increased [Not Recovered/Not Resolved]
  - Cyst [Unknown]
  - Skin ulcer [Unknown]
  - Hair texture abnormal [Unknown]

NARRATIVE: CASE EVENT DATE: 20180611
